FAERS Safety Report 22095569 (Version 3)
Quarter: 2025Q3

REPORT INFORMATION
  Report Type: Spontaneous
  Country: IN (occurrence: IN)
  Receive Date: 20230314
  Receipt Date: 20250922
  Transmission Date: 20251020
  Serious: Yes (Death, Hospitalization)
  Sender: PFIZER
  Company Number: IN-PFIZER INC-PV202300045163

PATIENT
  Age: 55 Year
  Sex: Female

DRUGS (1)
  1. CRIZOTINIB [Suspect]
     Active Substance: CRIZOTINIB
     Dosage: 250 MG (1-0-1) X 30 DAYS (1 MONTH))
     Route: 048
     Dates: start: 20220728, end: 202301

REACTIONS (2)
  - Death [Fatal]
  - Lower respiratory tract infection [Unknown]
